FAERS Safety Report 9023616 (Version 1)
Quarter: 2013Q1

REPORT INFORMATION
  Report Type: Spontaneous
  Country: US (occurrence: US)
  Receive Date: 20130121
  Receipt Date: 20130121
  Transmission Date: 20140127
  Serious: No
  Sender: FDA-Public Use
  Company Number: US-MYLANLABS-2012S1008485

PATIENT
  Age: 72 Year
  Sex: Female

DRUGS (2)
  1. CETIRIZINE HYDROCHLORIDE [Suspect]
     Indication: MULTIPLE ALLERGIES
     Route: 048
     Dates: start: 20120419
  2. AMOXICILLIN + CLAVULANIC ACID [Suspect]
     Indication: SINUSITIS
     Route: 048
     Dates: start: 20120419

REACTIONS (1)
  - Diarrhoea [Not Recovered/Not Resolved]
